FAERS Safety Report 8331948-3 (Version None)
Quarter: 2012Q2

REPORT INFORMATION
  Report Type: 
  Country: None (occurrence: None)
  Receive Date: 20120502
  Receipt Date: 20120420
  Transmission Date: 20120825
  Serious: Yes (Other)
  Sender: FDA-Public Use
  Company Number: US-ELI_LILLY_AND_COMPANY-US201112000512

PATIENT
  Sex: Female
  Weight: 53.061 kg

DRUGS (3)
  1. FORTEO [Suspect]
     Dosage: 20 UG, QD
  2. FORTEO [Suspect]
     Indication: OSTEOPOROSIS
     Dosage: 20 UG, QD
     Dates: start: 20110126
  3. FORTEO [Suspect]
     Dosage: 20 UG, QD

REACTIONS (12)
  - DYSPHAGIA [None]
  - GASTROINTESTINAL DISORDER [None]
  - BLOOD PRESSURE FLUCTUATION [None]
  - MALAISE [None]
  - DIVERTICULUM [None]
  - WEIGHT DECREASED [None]
  - DIARRHOEA [None]
  - ARTHRITIS [None]
  - DIZZINESS [None]
  - RENAL CYST [None]
  - PAIN [None]
  - NAUSEA [None]
